FAERS Safety Report 21057931 (Version 1)
Quarter: 2022Q3

REPORT INFORMATION
  Report Type: Spontaneous
  Country: JP (occurrence: JP)
  Receive Date: 20220708
  Receipt Date: 20220708
  Transmission Date: 20221026
  Serious: Yes (Death, Other)
  Sender: FDA-Public Use
  Company Number: JP-OTSUKA-2022_035380

PATIENT
  Age: 7 Decade
  Sex: Male

DRUGS (1)
  1. ABILIFY [Suspect]
     Active Substance: ARIPIPRAZOLE
     Indication: Mania
     Dosage: 12 MG/DAY
     Route: 048

REACTIONS (2)
  - Interstitial lung disease [Fatal]
  - Product use in unapproved indication [Unknown]
